FAERS Safety Report 17581105 (Version 3)
Quarter: 2021Q1

REPORT INFORMATION
  Report Type: Report from Study
  Country: US (occurrence: US)
  Receive Date: 20200325
  Receipt Date: 20210125
  Transmission Date: 20210419
  Serious: Yes (Other)
  Sender: FDA-Public Use
  Company Number: US-TAKEDA-2020TUS015493

PATIENT
  Age: 62 Year
  Sex: Female

DRUGS (1)
  1. PONATINIB [Suspect]
     Active Substance: PONATINIB
     Indication: GASTROINTESTINAL STROMAL TUMOUR
     Dosage: 45 MILLIGRAM, QD
     Route: 048
     Dates: start: 20200320

REACTIONS (6)
  - Gastrointestinal stromal tumour [Unknown]
  - Dry skin [Unknown]
  - Myalgia [Unknown]
  - Drug ineffective [Unknown]
  - Off label use [Unknown]
  - Constipation [Unknown]

NARRATIVE: CASE EVENT DATE: 20200320
